FAERS Safety Report 7880495 (Version 2)
Quarter: 2012Q4

REPORT INFORMATION
  Report Type: 
  Country: FR (occurrence: FR)
  Receive Date: 20110331
  Receipt Date: 20121101
  Transmission Date: 20130627
  Serious: Yes (Hospitalization)
  Sender: FDA-Public Use
  Company Number: PHHO2011FR01283

PATIENT
  Age: 63 Year
  Sex: Male
  Weight: 91 kg

DRUGS (21)
  1. RAD 666 / RAD 001A [Suspect]
     Indication: RENAL TRANSPLANT
     Dosage: 4 mg, QD
     Route: 002
     Dates: start: 20101111, end: 20101223
  2. CELLCEPT [Suspect]
     Indication: RENAL TRANSPLANT
     Dosage: 3 g, QD
     Route: 002
     Dates: start: 20101106, end: 20101217
  3. CELLCEPT [Suspect]
     Dosage: 2 g, daily
     Dates: start: 20101218, end: 20101228
  4. CELLCEPT [Suspect]
     Dosage: 250 mg, BID
     Route: 048
     Dates: start: 20100203
  5. SOLUPRED [Concomitant]
     Indication: RENAL TRANSPLANT
     Dosage: 20 mg, QD
     Dates: start: 20101107
  6. ROCEPHINE [Concomitant]
  7. PERFALGAN [Concomitant]
  8. SMECTA ^DAE WOONG^ [Concomitant]
  9. OFLOCET [Concomitant]
  10. MOPRAL [Concomitant]
  11. PHOSPHORUS [Concomitant]
  12. NEORECORMON [Concomitant]
  13. KALEORID [Concomitant]
  14. SODIUM BICARBONATE [Concomitant]
  15. PREVISCAN [Concomitant]
  16. LOVENOX [Concomitant]
  17. TEMERIT [Concomitant]
  18. TARDYFERON [Concomitant]
  19. BACTRIM [Concomitant]
  20. FORTUM [Concomitant]
     Indication: PYELONEPHRITIS
  21. CIFLOX [Concomitant]
     Indication: PYELONEPHRITIS

REACTIONS (25)
  - Pneumonia herpes viral [Recovering/Resolving]
  - Pleural effusion [Recovering/Resolving]
  - Cough [Recovering/Resolving]
  - Dyspnoea at rest [Recovering/Resolving]
  - Orthopnoea [Recovering/Resolving]
  - Varicella [Recovering/Resolving]
  - Oedema peripheral [Recovering/Resolving]
  - Diarrhoea [Recovering/Resolving]
  - Pyrexia [Recovering/Resolving]
  - Central nervous system infection [Unknown]
  - Meningeal disorder [Unknown]
  - Confusional state [Unknown]
  - Gastrointestinal ischaemia [Unknown]
  - Oedema mucosal [Unknown]
  - Faecal incontinence [Unknown]
  - Staphylococcal sepsis [Unknown]
  - Hepatocellular injury [Unknown]
  - Immune system disorder [Unknown]
  - Skin ulcer [Unknown]
  - Decubitus ulcer [Unknown]
  - Joint stiffness [Unknown]
  - Bladder dilatation [Unknown]
  - Leukocytosis [Unknown]
  - Overdose [Unknown]
  - Kidney transplant rejection [Recovered/Resolved]
